FAERS Safety Report 9399372 (Version 3)
Quarter: 2013Q3

REPORT INFORMATION
  Report Type: Spontaneous
  Country: US (occurrence: US)
  Receive Date: 20130715
  Receipt Date: 20130911
  Transmission Date: 20140515
  Serious: No
  Sender: FDA-Public Use
  Company Number: US-PFIZER INC-2013203823

PATIENT
  Age: 74 Year
  Sex: Male
  Weight: 107 kg

DRUGS (3)
  1. TIKOSYN [Suspect]
     Indication: CARDIAC DISORDER
     Dosage: 500 MG, 2X/DAY (EVERY 12 HOURS)
     Route: 048
     Dates: start: 201304
  2. WARFARIN [Concomitant]
     Dosage: UNK, 1X/DAY
  3. DIGOXIN [Concomitant]
     Dosage: UNK

REACTIONS (3)
  - Weight decreased [Unknown]
  - Poor quality drug administered [Unknown]
  - Product quality issue [Unknown]
